FAERS Safety Report 4469821-3 (Version None)
Quarter: 2004Q4

REPORT INFORMATION
  Report Type: 
  Country: None (occurrence: None)
  Receive Date: 20041008
  Receipt Date: 20041004
  Transmission Date: 20050328
  Serious: Yes (Hospitalization)
  Sender: FDA-Public Use
  Company Number: 001#3#2004-01997

PATIENT
  Age: 55 Year
  Sex: Male

DRUGS (4)
  1. CEFUHEXAL [Suspect]
     Indication: JAW OSTEITIS
     Dosage: 1000MG PER DAY
     Route: 048
     Dates: start: 20040522, end: 20040530
  2. ALLOPURINOL [Concomitant]
     Dosage: 300MG PER DAY
  3. ATACAND [Concomitant]
     Dosage: 16MG PER DAY
  4. MEGLUCON [Concomitant]
     Dosage: 850MG PER DAY

REACTIONS (4)
  - ABDOMINAL PAIN [None]
  - CARDIOVASCULAR DISORDER [None]
  - COLITIS [None]
  - LOOSE STOOLS [None]
